FAERS Safety Report 8828033 (Version 1)
Quarter: 2012Q4

REPORT INFORMATION
  Report Type: 
  Country: US (occurrence: US)
  Receive Date: 20121005
  Receipt Date: 20121005
  Transmission Date: 20130627
  Serious: Yes (Death, Hospitalization, Other)
  Sender: FDA-Public Use
  Company Number: US-ENDO PHARMACEUTICALS INC.-OPCR20121919

PATIENT
  Age: 29 Year
  Sex: Female

DRUGS (1)
  1. OPANA ER [Suspect]
     Indication: DRUG ABUSE
     Dosage: N/A
     Dates: start: 2012, end: 20120802

REACTIONS (7)
  - Death [None]
  - Pseudomonal sepsis [Not Recovered/Not Resolved]
  - Abscess bacterial [Not Recovered/Not Resolved]
  - Endocarditis pseudomonal [Not Recovered/Not Resolved]
  - Wrong technique in drug usage process [Recovered/Resolved]
  - Incorrect route of drug administration [Recovered/Resolved]
  - Drug abuse [Recovered/Resolved]
